FAERS Safety Report 16644237 (Version 8)
Quarter: 2020Q4

REPORT INFORMATION
  Report Type: Report from Study
  Country: US (occurrence: US)
  Receive Date: 20190729
  Receipt Date: 20201012
  Transmission Date: 20210113
  Serious: Yes (Hospitalization, Other)
  Sender: FDA-Public Use
  Company Number: PHEH2019US031389

PATIENT
  Age: 62 Year
  Sex: Female
  Weight: 107.48 kg

DRUGS (3)
  1. TREPROSTINIL. [Suspect]
     Active Substance: TREPROSTINIL
     Dosage: 66 NANOGRAM PER KILOGRAM
     Route: 042
     Dates: start: 20190424
  2. REVATIO [Concomitant]
     Active Substance: SILDENAFIL CITRATE
     Indication: PRODUCT USED FOR UNKNOWN INDICATION
     Dosage: UNK
     Route: 065
  3. TREPROSTINIL. [Suspect]
     Active Substance: TREPROSTINIL
     Indication: PULMONARY ARTERIAL HYPERTENSION
     Dosage: 57 NANOGRAM PER KILOGRAM
     Route: 065
     Dates: start: 20190424

REACTIONS (8)
  - Wheezing [Unknown]
  - Aspiration [Unknown]
  - Fluid overload [Unknown]
  - Fluid retention [Unknown]
  - Soft tissue disorder [Unknown]
  - Dyspnoea [Unknown]
  - Wound [Unknown]
  - Anxiety [Unknown]

NARRATIVE: CASE EVENT DATE: 20200923
